FAERS Safety Report 21548142 (Version 1)
Quarter: 2022Q4

REPORT INFORMATION
  Report Type: Report from Study
  Country: US (occurrence: US)
  Receive Date: 20221103
  Receipt Date: 20221103
  Transmission Date: 20230112
  Serious: Yes (Other)
  Sender: FDA-Public Use
  Company Number: US-BRISTOL-MYERS SQUIBB COMPANY-2022-128518

PATIENT
  Age: 64 Year
  Sex: Female
  Weight: 69.399 kg

DRUGS (3)
  1. POMALYST [Suspect]
     Active Substance: POMALIDOMIDE
     Indication: Plasma cell myeloma recurrent
     Dosage: 2MG / 1 CAP 14 OUT OF 28 DAYS
     Route: 048
     Dates: start: 20200302
  2. LOSARTAN POTASSIUM [Concomitant]
     Active Substance: LOSARTAN POTASSIUM
  3. ASPIRIN [Concomitant]
     Active Substance: ASPIRIN

REACTIONS (2)
  - Ovarian cyst [Unknown]
  - Off label use [Unknown]

NARRATIVE: CASE EVENT DATE: 20221018
